FAERS Safety Report 5552089-4 (Version None)
Quarter: 2007Q4

REPORT INFORMATION
  Report Type: 
  Country: None (occurrence: None)
  Receive Date: 20071130
  Receipt Date: 20070710
  Transmission Date: 20080405
  Serious: No
  Sender: FDA-Public Use
  Company Number: 2006PV017324

PATIENT
  Age: 65 Year
  Sex: Female

DRUGS (17)
  1. EXENATIDE (EXENATIDE) PEN, DISPOSABLE [Suspect]
     Indication: TYPE 2 DIABETES MELLITUS
     Dosage: 10 UG, 2/D, SUBCUTANEOUS, 5 UG, AS NEEDED, SUBCUTANEOUS, 5 UG, 2/D, SUBCUTANEOUS, 10 UG, 2/D, SUBCUT
     Route: 058
     Dates: start: 20060401, end: 20060709
  2. EXENATIDE (EXENATIDE) PEN, DISPOSABLE [Suspect]
     Indication: TYPE 2 DIABETES MELLITUS
     Dosage: 10 UG, 2/D, SUBCUTANEOUS, 5 UG, AS NEEDED, SUBCUTANEOUS, 5 UG, 2/D, SUBCUTANEOUS, 10 UG, 2/D, SUBCUT
     Route: 058
     Dates: start: 20060709
  3. EXENATIDE (EXENATIDE) PEN, DISPOSABLE [Suspect]
     Indication: TYPE 2 DIABETES MELLITUS
     Dosage: 10 UG, 2/D, SUBCUTANEOUS, 5 UG, AS NEEDED, SUBCUTANEOUS, 5 UG, 2/D, SUBCUTANEOUS, 10 UG, 2/D, SUBCUT
     Route: 058
     Dates: start: 20060709
  4. EXENATIDE (EXENATIDE) PEN, DISPOSABLE [Suspect]
  5. EXENATIDE (EXENATIDE) PEN, DISPOSABLE [Suspect]
  6. EXENATIDE 5 MCG  PEN, DISPOSABLE DEVICE (EXENATIDE PEN (5MCG))  PEN, D [Concomitant]
  7. EXENATIDE 10MCG PEN, DISPOSABLE DEVICE (EXENATIDE PEN (10MCG)) PEN, DI [Concomitant]
  8. GLUCOPHAGE XR (METFORMIN HYDROCHLORIDE) [Concomitant]
  9. LANTUS [Concomitant]
  10. GLYBURIDE [Concomitant]
  11. METFORMIN HCL [Concomitant]
  12. LISINOPRIL [Concomitant]
  13. LIPITOR [Concomitant]
  14. ZANTAC 150 [Concomitant]
  15. PROZAC [Concomitant]
  16. ASPIRIN [Concomitant]
  17. VITAMIN E (HERBAL OIL NOS) [Concomitant]

REACTIONS (6)
  - ABDOMINAL DISTENSION [None]
  - BLOOD GLUCOSE DECREASED [None]
  - DIARRHOEA [None]
  - FEELING COLD [None]
  - NAUSEA [None]
  - VOMITING [None]
